FAERS Safety Report 18685134 (Version 1)
Quarter: 2020Q4

REPORT INFORMATION
  Report Type: Spontaneous
  Country: AU (occurrence: AU)
  Receive Date: 20201230
  Receipt Date: 20201230
  Transmission Date: 20210114
  Serious: Yes (Hospitalization, Other)
  Sender: FDA-Public Use
  Company Number: AU-NOVOPROD-774438

PATIENT
  Age: 50 Year
  Sex: Female
  Weight: 81 kg

DRUGS (7)
  1. LITHIUM CARBONATE. [Concomitant]
     Active Substance: LITHIUM CARBONATE
     Indication: PRODUCT USED FOR UNKNOWN INDICATION
     Dosage: 250 MG, BID
     Route: 048
  2. THIAMINE [THIAMINE HYDROCHLORIDE] [Concomitant]
     Indication: PRODUCT USED FOR UNKNOWN INDICATION
     Dosage: 100 MG, QD
     Route: 048
  3. LAMOTRIGINE. [Concomitant]
     Active Substance: LAMOTRIGINE
     Indication: BIPOLAR DISORDER
     Dosage: 100 MG, 3 TABS [TABLETS] BD [TWICE DAILY]
     Route: 048
  4. ZOLEDRONIC ACID [Concomitant]
     Active Substance: ZOLEDRONIC ACID
     Indication: OSTEOPOROSIS
     Dosage: DOSE: ANNUALLY
     Route: 065
     Dates: start: 2014
  5. OZEMPIC [Suspect]
     Active Substance: SEMAGLUTIDE
     Indication: WEIGHT CONTROL
     Dosage: 0.50 MG, QW
     Route: 058
     Dates: start: 20200908, end: 20201029
  6. VIDATEC [Concomitant]
     Indication: VITAMIN SUPPLEMENTATION
     Dosage: DAILY DOSE: 1 BD [TWICE DAILY]
     Route: 065
     Dates: start: 202006
  7. QUETIAPINE. [Concomitant]
     Active Substance: QUETIAPINE
     Indication: BIPOLAR DISORDER
     Dosage: 200 MG, BID, AT NIGHT
     Route: 048

REACTIONS (3)
  - Small intestinal obstruction [Unknown]
  - Off label use [Unknown]
  - Alcoholic pancreatitis [Unknown]
